FAERS Safety Report 6169779-5 (Version None)
Quarter: 2009Q2

REPORT INFORMATION
  Report Type: 
  Country: None (occurrence: None)
  Receive Date: 20090428
  Receipt Date: 20090417
  Transmission Date: 20091009
  Serious: Yes (Hospitalization, Other)
  Sender: FDA-Public Use
  Company Number: US-AMGEN-QUU343360

PATIENT
  Sex: Female

DRUGS (2)
  1. EPOGEN [Suspect]
     Indication: DIALYSIS
     Route: 058
     Dates: start: 20070323
  2. UNSPECIFIED MEDICATION [Concomitant]
     Dates: start: 20070101

REACTIONS (2)
  - APLASIA PURE RED CELL [None]
  - DYSFUNCTIONAL UTERINE BLEEDING [None]
